FAERS Safety Report 24557148 (Version 2)
Quarter: 2024Q4

REPORT INFORMATION
  Report Type: Report from Study
  Country: US (occurrence: US)
  Receive Date: 20241028
  Receipt Date: 20241230
  Transmission Date: 20250115
  Serious: Yes (Other)
  Sender: NOVARTIS
  Company Number: US-002147023-NVSC2024US151459

PATIENT
  Sex: Female

DRUGS (2)
  1. KESIMPTA [Suspect]
     Active Substance: OFATUMUMAB
     Indication: Multiple sclerosis
     Dosage: 20 MG, QMO
     Route: 058
  2. ASPIRIN [Concomitant]
     Active Substance: ASPIRIN
     Indication: Product used for unknown indication
     Dosage: UNK
     Route: 065

REACTIONS (13)
  - Fatigue [Unknown]
  - Pain [Recovered/Resolved]
  - Inappropriate schedule of product administration [Unknown]
  - Ischaemic stroke [Recovering/Resolving]
  - Product distribution issue [Unknown]
  - Cough [Recovering/Resolving]
  - Pyrexia [Recovering/Resolving]
  - Vomiting [Unknown]
  - Speech disorder [Unknown]
  - Movement disorder [Unknown]
  - Heart valve stenosis [Unknown]
  - Cerebral disorder [Unknown]
  - Memory impairment [Unknown]
